APPROVED DRUG PRODUCT: LAMOTRIGINE
Active Ingredient: LAMOTRIGINE
Strength: 100MG
Dosage Form/Route: TABLET;ORAL
Application: A078310 | Product #002
Applicant: ZENNOVA PHARMACEUTICALS CHENGDU CO LTD
Approved: Feb 4, 2009 | RLD: No | RS: No | Type: DISCN